FAERS Safety Report 7468176-X (Version None)
Quarter: 2011Q2

REPORT INFORMATION
  Report Type: 
  Country: None (occurrence: None)
  Receive Date: 20110509
  Receipt Date: 20110411
  Transmission Date: 20111010
  Serious: Yes (Hospitalization)
  Sender: FDA-Public Use
  Company Number: US-ALEXION-A201100025

PATIENT
  Sex: Male

DRUGS (2)
  1. CYCLOSPORINE [Concomitant]
     Dosage: UNK
     Dates: start: 20101201
  2. SOLIRIS [Suspect]
     Indication: PAROXYSMAL NOCTURNAL HAEMOGLOBINURIA
     Dosage: UNK
     Route: 042

REACTIONS (4)
  - APLASTIC ANAEMIA [None]
  - DISEASE PROGRESSION [None]
  - CONDITION AGGRAVATED [None]
  - PYREXIA [None]
